FAERS Safety Report 19721576 (Version 1)
Quarter: 2021Q3

REPORT INFORMATION
  Report Type: Spontaneous
  Country: CA (occurrence: CA)
  Receive Date: 20210818
  Receipt Date: 20210818
  Transmission Date: 20211014
  Serious: Yes (Hospitalization)
  Sender: FDA-Public Use
  Company Number: CA-ROCHE-2887655

PATIENT
  Age: 48 Year
  Sex: Male
  Weight: 108 kg

DRUGS (1)
  1. ACTEMRA [Suspect]
     Active Substance: TOCILIZUMAB
     Indication: COVID-19
     Dosage: 4 SINGLE USE VIALS. PRESERVATIVE FREE
     Route: 042

REACTIONS (2)
  - Hepatic enzyme increased [Recovering/Resolving]
  - Neutrophil count decreased [Recovering/Resolving]
